FAERS Safety Report 9500246 (Version 1)
Quarter: 2013Q3

REPORT INFORMATION
  Report Type: Spontaneous
  Country: US (occurrence: None)
  Receive Date: 20130904
  Receipt Date: 20130904
  Transmission Date: 20140515
  Serious: Yes (Death)
  Sender: FDA-Public Use
  Company Number: None

PATIENT
  Age: 61 Year
  Sex: Male
  Weight: 96 kg

DRUGS (10)
  1. RIVAROXABAN [Suspect]
     Indication: DEEP VEIN THROMBOSIS
     Dosage: APPROXIMATELY 8 MONTHS-DURATION
     Route: 048
  2. ADAVIR [Concomitant]
  3. ALBUTEROL [Concomitant]
  4. LIPITOR [Concomitant]
  5. NORVASC [Concomitant]
  6. REQUIP [Concomitant]
  7. SINGULAIR [Concomitant]
  8. FISH OIL [Concomitant]
  9. MVI [Concomitant]
  10. CLARITIN [Concomitant]

REACTIONS (4)
  - Haemorrhage intracranial [None]
  - Vision blurred [None]
  - Headache [None]
  - Blindness [None]
